FAERS Safety Report 10865842 (Version 1)
Quarter: 2015Q1

REPORT INFORMATION
  Report Type: Report from Study
  Country: US (occurrence: US)
  Receive Date: 20150224
  Receipt Date: 20150224
  Transmission Date: 20150721
  Serious: Yes (Other)
  Sender: FDA-Public Use
  Company Number: US-UCBSA-097341

PATIENT
  Age: 70 Year
  Sex: Male
  Weight: 88.1 kg

DRUGS (12)
  1. COUMADIN [Concomitant]
     Active Substance: WARFARIN SODIUM
     Indication: ATRIAL FIBRILLATION
     Dosage: TUES, WED, THURS, SAT, SUN
     Route: 048
     Dates: start: 20130507
  2. CHOLESTYRAMINE. [Concomitant]
     Active Substance: CHOLESTYRAMINE
     Indication: DIARRHOEA
     Dosage: 4 MG, AS NEEDED (PRN)
     Route: 048
     Dates: start: 20130521
  3. HCTZ [Concomitant]
     Active Substance: HYDROCHLOROTHIAZIDE
     Indication: HYPERTENSION
     Dosage: 25 MG, ONCE DAILY (QD)
     Route: 048
     Dates: start: 20040514
  4. AMITRIPTYLINE [Concomitant]
     Active Substance: AMITRIPTYLINE
     Indication: NEUROPATHY PERIPHERAL
     Dosage: 10 MG, AS NEEDED (PRN)
     Route: 048
     Dates: start: 20021223
  5. IMODIUM MULTI-SYMPTOM RELIEF [Concomitant]
     Active Substance: DIMETHICONE\LOPERAMIDE HYDROCHLORIDE
     Indication: CROHN^S DISEASE
     Dosage: 2 TABS
     Route: 048
     Dates: start: 20041115
  6. ASACOL [Concomitant]
     Active Substance: MESALAMINE
     Indication: CROHN^S DISEASE
     Dosage: 400 MG, 3X/DAY (TID)
     Route: 048
     Dates: start: 20110101
  7. CERTOLIZUMAB PEGOL CD [Suspect]
     Active Substance: CERTOLIZUMAB PEGOL
     Indication: CROHN^S DISEASE
     Dosage: 400 MG, EV 4 WEEKS
     Route: 058
     Dates: start: 20081208, end: 20130813
  8. COREG [Concomitant]
     Active Substance: CARVEDILOL
     Indication: ATRIAL FIBRILLATION
     Dosage: QAM
     Route: 048
     Dates: start: 20130603
  9. COUMADIN [Concomitant]
     Active Substance: WARFARIN SODIUM
     Dosage: MON, FRI
     Route: 048
     Dates: start: 20130510
  10. COREG [Concomitant]
     Active Substance: CARVEDILOL
     Dosage: QPM
     Route: 048
     Dates: start: 20130603
  11. METROGEL [Concomitant]
     Active Substance: METRONIDAZOLE
     Indication: ROSACEA
     Dosage: ONE APPLICATION
     Route: 061
     Dates: start: 20021223
  12. VITAMIN B12 [Concomitant]
     Active Substance: CYANOCOBALAMIN
     Indication: PERNICIOUS ANAEMIA
     Dosage: 1000 ?G, MONTHLY (QM)
     Route: 030
     Dates: start: 20081210

REACTIONS (1)
  - Squamous cell carcinoma [Recovered/Resolved]

NARRATIVE: CASE EVENT DATE: 20130718
